FAERS Safety Report 25113734 (Version 1)
Quarter: 2025Q1

REPORT INFORMATION
  Report Type: Spontaneous
  Country: US (occurrence: None)
  Receive Date: 20250323
  Receipt Date: 20250323
  Transmission Date: 20250409
  Serious: Yes (Other)
  Sender: FDA-CTU
  Company Number: None

PATIENT
  Age: 45 Year
  Sex: Female
  Weight: 61.65 kg

DRUGS (4)
  1. SEPTOCAINE [Suspect]
     Active Substance: ARTICAINE HYDROCHLORIDE\EPINEPHRINE BITARTRATE
  2. DEXAMETHASONE [Concomitant]
     Active Substance: DEXAMETHASONE
  3. AMOXICILLIN [Concomitant]
     Active Substance: AMOXICILLIN
  4. IBUPROFEN [Concomitant]
     Active Substance: IBUPROFEN

REACTIONS (1)
  - Angioedema [None]

NARRATIVE: CASE EVENT DATE: 20250321
